FAERS Safety Report 4723891-3 (Version None)
Quarter: 2005Q3

REPORT INFORMATION
  Report Type: 
  Country: None (occurrence: None)
  Receive Date: 20050722
  Receipt Date: 20050711
  Transmission Date: 20060218
  Serious: Yes (Other)
  Sender: FDA-Public Use
  Company Number: 2005072247

PATIENT
  Age: 64 Year
  Sex: Male
  Weight: 73.4827 kg

DRUGS (7)
  1. BEXTRA [Suspect]
     Indication: ARTHRITIS
     Dosage: ORAL
     Route: 048
     Dates: end: 20050101
  2. BEXTRA [Suspect]
     Indication: OSTEOARTHRITIS
     Dosage: ORAL
     Route: 048
     Dates: end: 20050101
  3. BEXTRA [Suspect]
     Indication: PAIN
     Dosage: ORAL
     Route: 048
     Dates: end: 20050101
  4. ADVICOR [Suspect]
     Indication: LIPIDS INCREASED
     Dosage: 500/20 (1 IN 1 D)
     Dates: start: 20040810, end: 20050412
  5. PREVACID [Concomitant]
  6. MULTIVITAMIN [Concomitant]
  7. TAMSULOSIN HCL [Concomitant]

REACTIONS (8)
  - DRUG EFFECT DECREASED [None]
  - DRUG INEFFECTIVE [None]
  - HYPERSENSITIVITY [None]
  - PRURITUS [None]
  - SKIN BURNING SENSATION [None]
  - SKIN LESION [None]
  - TREATMENT NONCOMPLIANCE [None]
  - URTICARIA [None]
